FAERS Safety Report 4687211-5 (Version None)
Quarter: 2005Q2

REPORT INFORMATION
  Report Type: 
  Country: None (occurrence: None)
  Receive Date: 20050610
  Receipt Date: 20050517
  Transmission Date: 20051028
  Serious: Yes (Hospitalization)
  Sender: FDA-Public Use
  Company Number: PHHO2005JP07799

PATIENT
  Age: 52 Year
  Sex: Male

DRUGS (4)
  1. NATEGLINIDE [Suspect]
     Indication: DIABETES MELLITUS NON-INSULIN-DEPENDENT
     Dosage: 270 MG / DAY
     Route: 048
     Dates: start: 20050212, end: 20050513
  2. NATEGLINIDE [Suspect]
     Dosage: NOT REPORTED
     Route: 048
     Dates: start: 20050517
  3. METFORMIN HCL [Concomitant]
     Indication: DIABETES MELLITUS NON-INSULIN-DEPENDENT
     Dosage: 500 MG / DAY
     Route: 048
     Dates: start: 20050115, end: 20050513
  4. METFORMIN HCL [Concomitant]
     Dosage: NOT REPORTED
     Route: 048
     Dates: start: 20050517

REACTIONS (4)
  - COLONIC POLYP [None]
  - DISEASE RECURRENCE [None]
  - DIVERTICULITIS [None]
  - MELAENA [None]
